FAERS Safety Report 20257655 (Version 4)
Quarter: 2022Q4

REPORT INFORMATION
  Report Type: Spontaneous
  Country: US (occurrence: US)
  Receive Date: 20211230
  Receipt Date: 20221028
  Transmission Date: 20230112
  Serious: No
  Sender: FDA-Public Use
  Company Number: US-PFIZER INC-202101781098

PATIENT
  Age: 64 Year
  Sex: Female

DRUGS (1)
  1. XELJANZ XR [Suspect]
     Active Substance: TOFACITINIB CITRATE
     Indication: Colitis ulcerative
     Dosage: 22 MG, DAILY
     Route: 048
     Dates: start: 20211221

REACTIONS (7)
  - Colitis [Unknown]
  - Herpes zoster [Unknown]
  - Blood cholesterol increased [Unknown]
  - Blood pressure increased [Recovering/Resolving]
  - Abdominal discomfort [Unknown]
  - Illness [Recovering/Resolving]
  - Amnesia [Unknown]

NARRATIVE: CASE EVENT DATE: 20220101
